FAERS Safety Report 9150165 (Version 1)
Quarter: 2013Q1

REPORT INFORMATION
  Report Type: Spontaneous
  Country: US (occurrence: None)
  Receive Date: 20130228
  Receipt Date: 20130228
  Transmission Date: 20140127
  Serious: No
  Sender: FDA-Public Use
  Company Number: None

PATIENT
  Age: 67 Year
  Sex: Male

DRUGS (1)
  1. SULFAMETHOXAZOLE/TRIMETHOPRIM [Suspect]
     Dosage: 800/160 MG OTHER FREQUENCY PO
     Route: 048
     Dates: start: 20121227, end: 20121227

REACTIONS (1)
  - Anaphylactic reaction [None]
